FAERS Safety Report 10687158 (Version 1)
Quarter: 2015Q1

REPORT INFORMATION
  Report Type: Report from Study
  Country: US (occurrence: US)
  Receive Date: 20150102
  Receipt Date: 20150102
  Transmission Date: 20150720
  Serious: Yes (Other)
  Sender: FDA-Public Use
  Company Number: US-ROCHE-1515148

PATIENT
  Sex: Male
  Weight: 100.9 kg

DRUGS (18)
  1. AVASTIN [Suspect]
     Active Substance: BEVACIZUMAB
     Route: 042
     Dates: start: 20070620
  2. AVASTIN [Suspect]
     Active Substance: BEVACIZUMAB
     Dosage: CYCLE 4 TO CYCLE 7, DOSE WAS MAINTAINED WITH 530MG
     Route: 042
     Dates: start: 20070831
  3. KEPPRA [Concomitant]
     Active Substance: LEVETIRACETAM
  4. CLINDAMYCIN [Concomitant]
     Active Substance: CLINDAMYCIN\CLINDAMYCIN PHOSPHATE
     Indication: RASH
     Route: 065
  5. DECADRON [Concomitant]
     Active Substance: DEXAMETHASONE
     Route: 042
  6. PHENERGAN [Concomitant]
     Active Substance: PROMETHAZINE HYDROCHLORIDE
  7. AVASTIN [Suspect]
     Active Substance: BEVACIZUMAB
     Route: 042
  8. CPT-11 [Concomitant]
     Active Substance: IRINOTECAN
  9. TYLENOL [Concomitant]
     Active Substance: ACETAMINOPHEN
  10. ATIVAN [Concomitant]
     Active Substance: LORAZEPAM
     Dosage: IVP FORM
     Route: 042
  11. PROVIGIL [Concomitant]
     Active Substance: MODAFINIL
  12. AVASTIN [Suspect]
     Active Substance: BEVACIZUMAB
     Indication: BRAIN NEOPLASM MALIGNANT
     Route: 042
  13. ALOXI [Concomitant]
     Active Substance: PALONOSETRON HYDROCHLORIDE
     Route: 065
  14. AVASTIN [Suspect]
     Active Substance: BEVACIZUMAB
     Indication: BRAIN NEOPLASM MALIGNANT
     Dosage: CYCLES 4
     Route: 042
     Dates: start: 20070608
  15. PROTONIX (UNITED STATES) [Concomitant]
  16. CPT-11 [Concomitant]
     Active Substance: IRINOTECAN
  17. ATROPINE [Concomitant]
     Active Substance: ATROPINE
     Route: 042
  18. DEPAKOTE [Concomitant]
     Active Substance: DIVALPROEX SODIUM

REACTIONS (9)
  - Astrocytoma [Unknown]
  - Diarrhoea [Unknown]
  - Rash pustular [Recovering/Resolving]
  - Fatigue [Unknown]
  - Oedema peripheral [Unknown]
  - Myalgia [Unknown]
  - Painful defaecation [Unknown]
  - Arthralgia [Unknown]
  - Poor quality sleep [Unknown]
